FAERS Safety Report 10358705 (Version 2)
Quarter: 2014Q3

REPORT INFORMATION
  Report Type: Spontaneous
  Country: GB (occurrence: GB)
  Receive Date: 20140804
  Receipt Date: 20140804
  Transmission Date: 20150326
  Serious: Yes (Death, Hospitalization)
  Sender: FDA-Public Use
  Company Number: 2014SP002533

PATIENT
  Age: 72 Year
  Sex: Female

DRUGS (15)
  1. CO-AMOXICLAV /00756801/ [Concomitant]
     Active Substance: AMOXICILLIN\CLAVULANIC ACID
     Indication: URINARY TRACT INFECTION
     Dates: start: 20140410
  2. FOLIC ACID. [Concomitant]
     Active Substance: FOLIC ACID
  3. HALOPERIDOL. [Concomitant]
     Active Substance: HALOPERIDOL
  4. PAMIDRONATE [Suspect]
     Active Substance: PAMIDRONATE DISODIUM
     Indication: HYPERCALCAEMIA OF MALIGNANCY
     Route: 042
     Dates: start: 20140409, end: 20140409
  5. HUMAN INSULATARD [Concomitant]
     Active Substance: INSULIN HUMAN
  6. IBUPROFEN SODIUM [Suspect]
     Active Substance: IBUPROFEN SODIUM
     Indication: PAIN
     Route: 048
     Dates: start: 20140408, end: 20140415
  7. CYCLIZINE [Concomitant]
     Active Substance: CYCLIZINE
  8. PARACETAMOL [Concomitant]
     Active Substance: ACETAMINOPHEN
     Indication: PAIN
  9. SERTRALINE [Concomitant]
     Active Substance: SERTRALINE HYDROCHLORIDE
  10. TRIAMCINOLONE [Concomitant]
     Active Substance: TRIAMCINOLONE
  11. FERROUS FUMARATE [Concomitant]
     Active Substance: FERROUS FUMARATE
  12. LANSOPRAZOLE. [Concomitant]
     Active Substance: LANSOPRAZOLE
  13. PREDNISOLONE. [Concomitant]
     Active Substance: PREDNISOLONE
  14. ENOXAPARIN [Concomitant]
     Active Substance: ENOXAPARIN
  15. TERBUTALINE [Concomitant]
     Active Substance: TERBUTALINE

REACTIONS (3)
  - Renal failure acute [Fatal]
  - Nausea [Unknown]
  - Somnolence [Unknown]

NARRATIVE: CASE EVENT DATE: 20140414
